FAERS Safety Report 16032610 (Version 2)
Quarter: 2019Q1

REPORT INFORMATION
  Report Type: Spontaneous
  Country: US (occurrence: US)
  Receive Date: 20190305
  Receipt Date: 20190319
  Transmission Date: 20190418
  Serious: Yes (Other)
  Sender: FDA-Public Use
  Company Number: US-AUROBINDO-AUR-APL-2019-011175

PATIENT

DRUGS (1)
  1. AMIODARONE HYDROCHLORIDE 200MG TABLETS [Suspect]
     Active Substance: AMIODARONE HYDROCHLORIDE
     Indication: ATRIAL FIBRILLATION
     Route: 065

REACTIONS (4)
  - Cardiac failure [Unknown]
  - Gait disturbance [Unknown]
  - Haemorrhage urinary tract [Unknown]
  - Benign neoplasm of bladder [Unknown]
